FAERS Safety Report 20175423 (Version 4)
Quarter: 2022Q1

REPORT INFORMATION
  Report Type: Spontaneous
  Country: JP (occurrence: JP)
  Receive Date: 20211213
  Receipt Date: 20220301
  Transmission Date: 20220423
  Serious: Yes (Other)
  Sender: FDA-Public Use
  Company Number: JP-GLAXOSMITHKLINE-JP2021JPN252088

PATIENT
  Age: 6 Decade
  Sex: Female

DRUGS (6)
  1. FLUTICASONE FUROATE\VILANTEROL TRIFENATATE [Suspect]
     Active Substance: FLUTICASONE FUROATE\VILANTEROL TRIFENATATE
     Indication: Asthma
     Dosage: 100 UG, QD
     Route: 055
     Dates: start: 2015
  2. RINDERON [Concomitant]
     Indication: Epiglottitis
     Dosage: UNK
  3. PREDONINE [Concomitant]
     Active Substance: PREDNISOLONE
     Indication: Epiglottitis
     Dosage: UNK
  4. SIMVASTATIN [Concomitant]
     Active Substance: SIMVASTATIN
     Indication: Hyperlipidaemia
     Dosage: UNK
     Route: 048
     Dates: start: 2010
  5. LANSOPRAZOLE [Concomitant]
     Active Substance: LANSOPRAZOLE
     Indication: Gastrooesophageal reflux disease
     Dosage: UNK
     Route: 048
     Dates: start: 2010
  6. REBAMIPIDE TABLETS [Concomitant]
     Indication: Gastrooesophageal reflux disease
     Dosage: 3 DF
     Route: 048
     Dates: start: 2010

REACTIONS (2)
  - Epiglottitis [Recovering/Resolving]
  - Condition aggravated [Recovering/Resolving]
